FAERS Safety Report 4488259-6 (Version None)
Quarter: 2004Q4

REPORT INFORMATION
  Report Type: 
  Country: None (occurrence: None)
  Receive Date: 20041028
  Receipt Date: 20041022
  Transmission Date: 20050328
  Serious: Yes (Other)
  Sender: FDA-Public Use
  Company Number: PHBS2004JP14244

PATIENT
  Age: 84 Year
  Sex: Female

DRUGS (9)
  1. DIOVAN [Suspect]
     Route: 048
  2. AMLODIN [Concomitant]
     Dosage: 5 MG, UNK
     Route: 048
  3. MEVALOTIN [Concomitant]
     Dosage: 5 MG, UNK
     Route: 048
  4. GASTER [Concomitant]
     Dosage: 20 MG, UNK
     Route: 048
  5. PANALDINE [Concomitant]
     Dosage: 2 DF, UNK
     Route: 048
  6. CYANOCOBALAMIN [Concomitant]
     Dosage: 2 DF, UNK
     Route: 048
  7. KAMAG G [Concomitant]
     Dosage: 1.4 G, UNK
     Route: 048
  8. SELBEX [Concomitant]
     Dosage: 1.5 G, UNK
     Route: 048
  9. FERRO-GRADUMET [Concomitant]
     Dosage: 1 DF, UNK
     Route: 048

REACTIONS (1)
  - HALLUCINATION [None]
